FAERS Safety Report 6965127-9 (Version None)
Quarter: 2010Q3

REPORT INFORMATION
  Report Type: 
  Country: None (occurrence: None)
  Receive Date: 20100903
  Receipt Date: 20100823
  Transmission Date: 20110219
  Serious: Yes (Hospitalization, Other)
  Sender: FDA-Public Use
  Company Number: US-PFIZER INC-2010106338

PATIENT
  Sex: Female
  Weight: 72.562 kg

DRUGS (8)
  1. ARTHROTEC [Suspect]
     Indication: SPONDYLITIS
     Dosage: 75 MG, 3X/DAY
     Route: 048
     Dates: start: 20000101, end: 20100119
  2. ARTHROTEC [Suspect]
     Dosage: 75 MG, 3X/DAY
     Route: 048
     Dates: end: 20100701
  3. ARTHROTEC [Suspect]
     Dosage: 75 MG, 3X/DAY
     Route: 048
     Dates: start: 20100801
  4. TAMOXIFEN CITRATE [Suspect]
     Indication: BREAST CANCER FEMALE
     Dosage: UNK
     Route: 048
     Dates: start: 19960101
  5. CALCIUM [Suspect]
     Dosage: UNK
     Route: 048
     Dates: end: 20100801
  6. ESOMEPRAZOLE MAGNESIUM [Concomitant]
     Indication: DYSPEPSIA
     Dosage: UNK
     Route: 048
  7. FENOFIBRATE [Concomitant]
     Indication: BLOOD CHOLESTEROL INCREASED
     Dosage: 20 MG, 1X/DAY
     Route: 048
  8. MULTI-VITAMINS [Concomitant]
     Dosage: UNK
     Route: 048

REACTIONS (4)
  - FOOT FRACTURE [None]
  - HYPERPLASIA [None]
  - NEUROPATHY PERIPHERAL [None]
  - UPPER LIMB FRACTURE [None]
